FAERS Safety Report 8822240 (Version 2)
Quarter: 2012Q4

REPORT INFORMATION
  Report Type: 
  Country: US (occurrence: US)
  Receive Date: 20121003
  Receipt Date: 20121122
  Transmission Date: 20130627
  Serious: No
  Sender: FDA-Public Use
  Company Number: US-PFIZER INC-2012243565

PATIENT
  Age: 49 Year
  Sex: Female
  Weight: 70.3 kg

DRUGS (4)
  1. LYRICA [Suspect]
     Indication: NERVE DAMAGE
     Dosage: 75 mg, 2x/day
     Route: 048
     Dates: start: 2012
  2. CELEBREX [Concomitant]
     Dosage: UNK
  3. TRAMADOL [Concomitant]
     Dosage: UNK
  4. ESTRADIOL [Concomitant]
     Dosage: UNK

REACTIONS (1)
  - Visual acuity reduced [Not Recovered/Not Resolved]
